FAERS Safety Report 16854278 (Version 1)
Quarter: 2019Q3

REPORT INFORMATION
  Report Type: Spontaneous
  Country: US (occurrence: US)
  Receive Date: 20190926
  Receipt Date: 20190926
  Transmission Date: 20191005
  Serious: No
  Sender: FDA-Public Use
  Company Number: US-BION-007602

PATIENT
  Sex: Female

DRUGS (3)
  1. IMODIUM A-D [Suspect]
     Active Substance: LOPERAMIDE HYDROCHLORIDE
     Indication: DIARRHOEA
  2. NERLYNX [Concomitant]
     Active Substance: NERATINIB
     Indication: BREAST CANCER
  3. COLESTIPOL/COLESTIPOL HYDROCHLORIDE [Concomitant]
     Indication: DIARRHOEA

REACTIONS (1)
  - Overdose [Not Recovered/Not Resolved]
